FAERS Safety Report 9023560 (Version 1)
Quarter: 2013Q1

REPORT INFORMATION
  Report Type: Report from Study
  Country: DE (occurrence: DE)
  Receive Date: 20130121
  Receipt Date: 20130121
  Transmission Date: 20140127
  Serious: Yes (Hospitalization)
  Sender: FDA-Public Use
  Company Number: PHHY2013DE005299

PATIENT
  Sex: Male

DRUGS (4)
  1. FTY 720 [Suspect]
     Dosage: 0.5 MG, QD
     Route: 048
     Dates: start: 20120821
  2. DONEURIN [Concomitant]
     Indication: DEPRESSED MOOD
     Dosage: 50 MG, UNK
     Route: 048
     Dates: start: 20090828
  3. IBUPROFEN [Concomitant]
     Indication: NASOPHARYNGITIS
     Dosage: 600 MG, PRN
     Route: 048
     Dates: start: 20091222
  4. INSULIN [Concomitant]
     Indication: DIABETES MELLITUS
     Dosage: UNK

REACTIONS (1)
  - Muscular weakness [Recovered/Resolved]
